FAERS Safety Report 8999526 (Version 2)
Quarter: 2013Q1

REPORT INFORMATION
  Report Type: Report from Study
  Country: JP (occurrence: JP)
  Receive Date: 20130103
  Receipt Date: 20130117
  Transmission Date: 20140127
  Serious: Yes (Hospitalization, Other)
  Sender: FDA-Public Use
  Company Number: JP-PFIZER INC-2012282196

PATIENT
  Age: 50 Year
  Sex: Male
  Weight: 60.8 kg

DRUGS (8)
  1. TOFACITINIB CITRATE [Suspect]
     Indication: RHEUMATOID ARTHRITIS
     Dosage: 5 MG, 2X/DAY
     Route: 048
     Dates: start: 20091213, end: 20121129
  2. MEDROL [Suspect]
     Indication: RHEUMATOID ARTHRITIS
     Dosage: 2 MG, 1X/DAY
     Route: 048
     Dates: start: 20110809
  3. MELOXICAM [Suspect]
     Indication: RHEUMATOID ARTHRITIS
     Dosage: 10 MG, 1X/DAY
     Route: 048
     Dates: start: 20110809
  4. REBAMIPIDE [Concomitant]
     Indication: GASTROOESOPHAGEAL REFLUX DISEASE
     Dosage: 100 MG, 1X/DAY
     Route: 048
     Dates: start: 20110809
  5. RABEPRAZOLE SODIUM [Concomitant]
     Indication: GASTROOESOPHAGEAL REFLUX DISEASE
     Dosage: 10 MG, 1X/DAY
     Route: 048
     Dates: start: 20110809
  6. EXFORGE [Concomitant]
     Indication: HYPERTENSION
     Dosage: 1 DF, 1X/DAY
     Route: 048
     Dates: start: 20110809
  7. LAMISIL [Concomitant]
     Indication: TINEA PEDIS
     Dosage: AN APPROPRIATE DOSE AS NEEDED
     Route: 061
     Dates: start: 20120605
  8. LAMISIL [Concomitant]
     Indication: TINEA PEDIS
     Dosage: AN APPROPRIATE DOSE AS NEEDED
     Route: 061
     Dates: start: 20120605

REACTIONS (2)
  - Large intestine polyp [Recovered/Resolved]
  - Post procedural haemorrhage [Recovered/Resolved]
